FAERS Safety Report 9782489 (Version 2)
Quarter: 2014Q1

REPORT INFORMATION
  Report Type: Spontaneous
  Country: JP (occurrence: JP)
  Receive Date: 20131226
  Receipt Date: 20140128
  Transmission Date: 20141002
  Serious: Yes (Other)
  Sender: FDA-Public Use
  Company Number: JP-SA-2013SA132402

PATIENT
  Age: 84 Year
  Sex: Female

DRUGS (1)
  1. PLAVIX [Suspect]
     Indication: NERVOUS SYSTEM DISORDER
     Route: 048
     Dates: start: 201207

REACTIONS (1)
  - Loss of consciousness [Recovered/Resolved]
